FAERS Safety Report 9339065 (Version 1)
Quarter: 2013Q2

REPORT INFORMATION
  Report Type: Spontaneous
  Country: CA (occurrence: CA)
  Receive Date: 20130610
  Receipt Date: 20130610
  Transmission Date: 20140414
  Serious: Yes (Other)
  Sender: FDA-Public Use
  Company Number: CA-GENZYME-LEUP-1000011

PATIENT
  Age: 14 Year
  Sex: Female

DRUGS (2)
  1. LEUPROLIDE ACETATE [Suspect]
     Indication: PRECOCIOUS PUBERTY
     Dosage: 7.5 MG, Q3W
     Route: 065
  2. LEUPROLIDE ACETATE [Suspect]
     Dosage: 22.5 MG, EVERY THREE MONTHS
     Route: 065

REACTIONS (1)
  - Epiphysiolysis [Unknown]
